FAERS Safety Report 8831715 (Version 2)
Quarter: 2014Q3

REPORT INFORMATION
  Report Type: Report from Study
  Country: US (occurrence: US)
  Receive Date: 20121009
  Receipt Date: 20140904
  Transmission Date: 20150326
  Serious: Yes (Other)
  Sender: FDA-Public Use
  Company Number: US-ROCHE-1136961

PATIENT
  Sex: Male

DRUGS (1)
  1. RITUXAN [Suspect]
     Active Substance: RITUXIMAB
     Indication: IMMUNE THROMBOCYTOPENIC PURPURA
     Route: 042

REACTIONS (6)
  - Contusion [Unknown]
  - Off label use [Unknown]
  - Chills [Unknown]
  - Platelet count decreased [Unknown]
  - Pyrexia [Unknown]
  - Hyperhidrosis [Unknown]
